FAERS Safety Report 9742778 (Version 1)
Quarter: 2013Q4

REPORT INFORMATION
  Report Type: Spontaneous
  Country: FR (occurrence: FR)
  Receive Date: 20131210
  Receipt Date: 20131210
  Transmission Date: 20140711
  Serious: Yes (Hospitalization)
  Sender: FDA-Public Use
  Company Number: FR-PFIZER INC-2013345189

PATIENT
  Age: 68 Year
  Sex: Female

DRUGS (1)
  1. TAZOCILLINE [Suspect]
     Indication: DEVICE RELATED INFECTION
     Dosage: 1 DF, 4X/DAY
     Route: 042
     Dates: start: 20131106, end: 20131111

REACTIONS (5)
  - Rash [Recovered/Resolved]
  - Pruritus [Recovered/Resolved]
  - Hepatocellular injury [Recovered/Resolved]
  - Eosinophilia [Recovered/Resolved]
  - Oedema peripheral [Recovered/Resolved]
